FAERS Safety Report 4725724-8 (Version None)
Quarter: 2005Q3

REPORT INFORMATION
  Report Type: 
  Country: None (occurrence: None)
  Receive Date: 20050727
  Receipt Date: 20050725
  Transmission Date: 20060218
  Serious: Yes (Life-Threatening, Hospitalization)
  Sender: FDA-Public Use
  Company Number: 2005AP04034

PATIENT
  Sex: Male

DRUGS (6)
  1. TOPROL-XL [Suspect]
     Route: 048
     Dates: start: 20050419
  2. ASPIRIN [Concomitant]
     Route: 048
     Dates: end: 20050114
  3. AVAPRO [Concomitant]
  4. ZOCOR [Concomitant]
  5. CLOPIDOGREL BISULFATE [Concomitant]
  6. F.G.F [Concomitant]

REACTIONS (4)
  - AUTOIMMUNE THROMBOCYTOPENIA [None]
  - HAEMATURIA [None]
  - HAEMORRHAGE SUBCUTANEOUS [None]
  - THROMBOCYTOPENIA [None]
